FAERS Safety Report 7552643-4 (Version None)
Quarter: 2011Q2

REPORT INFORMATION
  Report Type: 
  Country: None (occurrence: None)
  Receive Date: 20110616
  Receipt Date: 20110609
  Transmission Date: 20111010
  Serious: Yes (Other)
  Sender: FDA-Public Use
  Company Number: US-GILEAD-2011-0038095

PATIENT
  Sex: Female

DRUGS (3)
  1. SILDENAFIL CITRATE [Concomitant]
  2. LETAIRIS [Suspect]
     Indication: PULMONARY ARTERIAL HYPERTENSION
     Route: 048
     Dates: start: 20100501, end: 20110321
  3. OXYGEN [Concomitant]

REACTIONS (2)
  - LIVER FUNCTION TEST ABNORMAL [None]
  - AUTOIMMUNE HEPATITIS [None]
